FAERS Safety Report 16244260 (Version 4)
Quarter: 2019Q4

REPORT INFORMATION
  Report Type: Spontaneous
  Country: NL (occurrence: NL)
  Receive Date: 20190426
  Receipt Date: 20191122
  Transmission Date: 20200122
  Serious: Yes (Other)
  Sender: FDA-Public Use
  Company Number: NL-MYLANLABS-2019M1038143

PATIENT
  Age: 77 Year
  Sex: Male

DRUGS (21)
  1. DABIGATRAN [Concomitant]
     Active Substance: DABIGATRAN
     Indication: PRODUCT USED FOR UNKNOWN INDICATION
     Dosage: 300 MILLIGRAM, QD (300 MG, 1X/DAY), 150 MG, BID
     Route: 065
     Dates: start: 2014
  2. TOLBUTAMIDE. [Concomitant]
     Active Substance: TOLBUTAMIDE
     Indication: PRODUCT USED FOR UNKNOWN INDICATION
     Dosage: 1000 MILLIGRAM, QD (1000 MG, 1X/DAY)
     Route: 065
  3. TAMSULOSIN [Suspect]
     Active Substance: TAMSULOSIN
     Indication: PRODUCT USED FOR UNKNOWN INDICATION
     Dosage: 0.4 MILLIGRAM, QD (0.4 MG, 1X/DAY (1 UNIT))
     Route: 065
  4. DIGOXIN. [Suspect]
     Active Substance: DIGOXIN
     Indication: PRODUCT USED FOR UNKNOWN INDICATION
     Dosage: 0.06 MILLIGRAM, QD (0.06 MG, 1X/DAY) (0.062 MG, ONCE DAILY)
     Route: 065
  5. DIGOXIN. [Suspect]
     Active Substance: DIGOXIN
     Dosage: 0.13 MILLIGRAM, QD (0.13 MG, 1X/DAY) (0.125 MG, ONCE DAILY)
     Route: 065
  6. ISOSORBIDE MONONITRATE. [Concomitant]
     Active Substance: ISOSORBIDE MONONITRATE
     Indication: PRODUCT USED FOR UNKNOWN INDICATION
     Dosage: 25 MILLIGRAM, QD (25 MG, 1X/DAY)
     Route: 065
  7. METFORMIN HCL [Concomitant]
     Active Substance: METFORMIN HYDROCHLORIDE
     Dosage: 500 MILLIGRAM, Q8H, 500 MG, TID
     Route: 065
  8. METOPROLOL. [Suspect]
     Active Substance: METOPROLOL
     Indication: PRODUCT USED FOR UNKNOWN INDICATION
     Dosage: 100 MILLIGRAM, QD (50 MG, 2X/DAY (IN THE MORNING AND IN THE EVENING)
     Route: 065
  9. METOPROLOL. [Suspect]
     Active Substance: METOPROLOL
     Dosage: 50 MG, ONCE DAILY
     Route: 065
  10. DIGOXIN. [Suspect]
     Active Substance: DIGOXIN
     Dosage: 0.125 MG, QD
     Route: 065
  11. PANTOPRAZOLE                       /01263204/ [Concomitant]
     Active Substance: PANTOPRAZOLE SODIUM
     Dosage: 80 MG, QD TEMPORARILY DOUBLE THE DOSE OF PANTOPRAZOLE
     Route: 065
  12. ATORVASTATIN [Concomitant]
     Active Substance: ATORVASTATIN
     Indication: PRODUCT USED FOR UNKNOWN INDICATION
     Dosage: 40 MILLIGRAM, QD (40 MG, 1X/DAY)
     Route: 065
  13. CALCIUM +D3 [Concomitant]
     Active Substance: CALCIUM\CHOLECALCIFEROL
     Indication: PRODUCT USED FOR UNKNOWN INDICATION
     Dosage: UNK UNK, QD (500MG/800 IU, 1X/DAY)
     Route: 065
  14. METOPROLOL. [Suspect]
     Active Substance: METOPROLOL
     Dosage: 2 DF IN THE MORNING, 1 DF IN THE EVENING
  15. DIPYRIDAMOLE. [Suspect]
     Active Substance: DIPYRIDAMOLE
     Indication: PRODUCT USED FOR UNKNOWN INDICATION
     Dosage: 200 MILLIGRAM, QD (200 MG, 1X/DAY)
     Route: 065
  16. PANTOPRAZOLE                       /01263204/ [Concomitant]
     Active Substance: PANTOPRAZOLE SODIUM
     Indication: PRODUCT USED FOR UNKNOWN INDICATION
     Dosage: 40 MILLIGRAM, QD (40 MG, 1X/DAY)
     Route: 065
  17. PARACETAMOL [Concomitant]
     Active Substance: ACETAMINOPHEN
     Indication: PRODUCT USED FOR UNKNOWN INDICATION
     Dosage: UNK
     Route: 065
  18. METFORMIN HCL [Concomitant]
     Active Substance: METFORMIN HYDROCHLORIDE
     Indication: PRODUCT USED FOR UNKNOWN INDICATION
     Dosage: 1500 MILLIGRAM, QD (1500 MG, 1X/DAY)
     Route: 065
  19. METOPROLOL. [Suspect]
     Active Substance: METOPROLOL
     Dosage: 2 TABLETS IN THE MORNING AND 1 IN THE EVENING, TWICE DAILY
     Route: 065
  20. PANTOPRAZOLE                       /01263204/ [Concomitant]
     Active Substance: PANTOPRAZOLE SODIUM
     Dosage: REDUCED
     Route: 065
  21. TOLBUTAMIDE. [Concomitant]
     Active Substance: TOLBUTAMIDE
     Dosage: 500 MG, BID
     Route: 065

REACTIONS (4)
  - Drug ineffective [Unknown]
  - Cognitive disorder [Not Recovered/Not Resolved]
  - Gastric disorder [Recovered/Resolved]
  - Dizziness [Recovering/Resolving]
